FAERS Safety Report 23525651 (Version 1)
Quarter: 2024Q1

REPORT INFORMATION
  Report Type: Spontaneous
  Country: CN (occurrence: None)
  Receive Date: 20240215
  Receipt Date: 20240215
  Transmission Date: 20240410
  Serious: Yes (Death, Other)
  Sender: FDA-Public Use
  Company Number: CN-Unichem Pharmaceuticals (USA) Inc-UCM202402-000121

PATIENT
  Age: 53 Year
  Sex: Male

DRUGS (1)
  1. CARBAMAZEPINE [Suspect]
     Active Substance: CARBAMAZEPINE
     Indication: Muscle spasms
     Dosage: UNKNOWN

REACTIONS (8)
  - Pneumocystis jirovecii pneumonia [Fatal]
  - Fungal infection [Fatal]
  - Interstitial lung disease [Fatal]
  - Drug reaction with eosinophilia and systemic symptoms [Fatal]
  - Hepatic enzyme increased [Fatal]
  - Renal impairment [Fatal]
  - Troponin I increased [Fatal]
  - Product use in unapproved indication [Unknown]
